FAERS Safety Report 6259015-3 (Version None)
Quarter: 2009Q3

REPORT INFORMATION
  Report Type: 
  Country: None (occurrence: None)
  Receive Date: 20090707
  Receipt Date: 20090629
  Transmission Date: 20100115
  Serious: Yes (Hospitalization, Other)
  Sender: FDA-Public Use
  Company Number: PHHY2009FR24707

PATIENT
  Sex: Male

DRUGS (10)
  1. TEGRETOL-XR [Suspect]
     Indication: FACIAL NEURALGIA
     Dosage: 500 MG, QD
     Route: 048
     Dates: start: 20070501
  2. TEGRETOL-XR [Suspect]
     Dosage: 200 MG, QD
  3. CLONAZEPAM [Suspect]
     Indication: FACIAL NEURALGIA
     Dosage: 10 DRP, QD
     Route: 048
     Dates: start: 20070601
  4. LYRICA [Suspect]
     Indication: FACIAL NEURALGIA
     Dosage: 225 MG, QD
  5. LYRICA [Suspect]
     Dosage: 150 MGAM,450 MG PM
     Route: 048
     Dates: start: 20070801
  6. LYRICA [Suspect]
     Dosage: 450 MG, QD
  7. BETAFERON [Concomitant]
     Indication: MULTIPLE SCLEROSIS
     Dosage: 1 DF, QW2
  8. KARDEGIC [Concomitant]
     Dosage: 75 MG, QD
     Route: 048
  9. LIORESAL [Concomitant]
     Dosage: 25 MG, QD
     Route: 048
  10. LAROXYL [Concomitant]
     Dosage: 10 MG/DAY
     Dates: start: 20081204, end: 20090119

REACTIONS (7)
  - BALANCE DISORDER [None]
  - CONDITION AGGRAVATED [None]
  - DIPLOPIA [None]
  - EYE MOVEMENT DISORDER [None]
  - FACIAL NEURALGIA [None]
  - GAIT DISTURBANCE [None]
  - SOMNOLENCE [None]
